FAERS Safety Report 10176965 (Version 2)
Quarter: 2014Q2

REPORT INFORMATION
  Report Type: Spontaneous
  Country: BR (occurrence: BR)
  Receive Date: 20140516
  Receipt Date: 20140516
  Transmission Date: 20141212
  Serious: Yes (Other)
  Sender: FDA-Public Use
  Company Number: BR-ASTRAZENECA-2012SE82498

PATIENT
  Age: 52 Year
  Sex: Female
  Weight: 62 kg

DRUGS (7)
  1. CRESTOR [Suspect]
     Indication: BLOOD CHOLESTEROL INCREASED
     Route: 048
     Dates: start: 201109, end: 201205
  2. CRESTOR [Suspect]
     Indication: CAROTID ARTERY OCCLUSION
     Route: 048
     Dates: start: 201109, end: 201205
  3. CRESTOR [Suspect]
     Indication: BLOOD CHOLESTEROL INCREASED
     Route: 048
     Dates: start: 201205
  4. CRESTOR [Suspect]
     Indication: CAROTID ARTERY OCCLUSION
     Route: 048
     Dates: start: 201205
  5. OLCADIL [Suspect]
     Route: 048
  6. CITALOPRAM [Suspect]
     Route: 048
  7. UNKNOWN [Suspect]
     Indication: HORMONE REPLACEMENT THERAPY
     Route: 065

REACTIONS (2)
  - Carotid artery occlusion [Not Recovered/Not Resolved]
  - Breast swelling [Recovered/Resolved]
